FAERS Safety Report 9965983 (Version 1)
Quarter: 2014Q1

REPORT INFORMATION
  Report Type: Report from Study
  Country: US (occurrence: US)
  Receive Date: 20140305
  Receipt Date: 20140305
  Transmission Date: 20141002
  Serious: No
  Sender: FDA-Public Use
  Company Number: US-ABBVIE-13P-163-1125763-00

PATIENT
  Age: 22 Year
  Sex: Female

DRUGS (4)
  1. HUMIRA [Suspect]
     Indication: CROHN^S DISEASE
     Dates: start: 2011
  2. HUMIRA [Suspect]
     Dates: start: 201303
  3. BIRTH CONTROL PILLS [Concomitant]
     Indication: CONTRACEPTION
     Dosage: DAILY
  4. MULTIVITAMIN [Concomitant]
     Indication: PRODUCT USED FOR UNKNOWN INDICATION
     Dosage: DAILY

REACTIONS (7)
  - Drug dose omission [Not Recovered/Not Resolved]
  - Wrong technique in drug usage process [Not Recovered/Not Resolved]
  - Anxiety [Not Recovered/Not Resolved]
  - Injection site pain [Unknown]
  - Injection site pain [Unknown]
  - Injection site swelling [Unknown]
  - Injection site erythema [Unknown]
